FAERS Safety Report 7560571-3 (Version None)
Quarter: 2011Q2

REPORT INFORMATION
  Report Type: 
  Country: None (occurrence: None)
  Receive Date: 20110621
  Receipt Date: 20100806
  Transmission Date: 20111010
  Serious: No
  Sender: FDA-Public Use
  Company Number: US-ASTRAZENECA-2010SE31643

PATIENT
  Age: 57 Year
  Sex: Female
  Weight: 76.2 kg

DRUGS (5)
  1. LOMOTIL [Concomitant]
  2. LOW DOSE STEROIDS [Concomitant]
  3. ENTOCORT EC [Suspect]
     Route: 048
     Dates: start: 20070101
  4. PENTASA [Suspect]
  5. ASACOL [Suspect]

REACTIONS (3)
  - NAUSEA [None]
  - FREQUENT BOWEL MOVEMENTS [None]
  - MUSCLE SPASMS [None]
